FAERS Safety Report 5959718-1 (Version None)
Quarter: 2008Q4

REPORT INFORMATION
  Report Type: 
  Country: None (occurrence: None)
  Receive Date: 20081119
  Receipt Date: 20081119
  Transmission Date: 20090506
  Serious: Yes (Life-Threatening)
  Sender: FDA-Public Use
  Company Number: None

PATIENT
  Age: 70 Year
  Sex: Male

DRUGS (1)
  1. MULTIHANCE [Suspect]
     Indication: SCAN WITH CONTRAST
     Dosage: 8 ML/8ML DILUTION IV

REACTIONS (4)
  - HYPERHIDROSIS [None]
  - SKIN DISCOLOURATION [None]
  - UNRESPONSIVE TO STIMULI [None]
  - VOMITING [None]
